FAERS Safety Report 23649147 (Version 1)
Quarter: 2024Q1

REPORT INFORMATION
  Report Type: Spontaneous
  Country: US (occurrence: US)
  Receive Date: 20240319
  Receipt Date: 20240319
  Transmission Date: 20240410
  Serious: No
  Sender: FDA-Public Use
  Company Number: US-MARINUS PHARMACEUTICALS, INC.-MAR2023000170

PATIENT

DRUGS (4)
  1. ZTALMY [Suspect]
     Active Substance: GANAXOLONE
     Indication: Product used for unknown indication
     Dosage: 3 MILLILITER, TID, TITRATION DOSE
     Route: 048
     Dates: end: 2023
  2. ZTALMY [Suspect]
     Active Substance: GANAXOLONE
     Dosage: 6 MILLILITER, TID, TITRATION DOSE
     Route: 048
     Dates: end: 2023
  3. ZTALMY [Suspect]
     Active Substance: GANAXOLONE
     Dosage: 9 MILLILITER, TID, TITRATION DOSE
     Route: 048
     Dates: end: 2023
  4. ZTALMY [Suspect]
     Active Substance: GANAXOLONE
     Dosage: 12 MILLILITER, TID, TITRATION DOSE
     Route: 048
     Dates: end: 2023

REACTIONS (1)
  - Drug intolerance [Unknown]

NARRATIVE: CASE EVENT DATE: 20230101
